FAERS Safety Report 25226062 (Version 1)
Quarter: 2025Q2

REPORT INFORMATION
  Report Type: Report from Study
  Country: US (occurrence: US)
  Receive Date: 20250422
  Receipt Date: 20250422
  Transmission Date: 20250716
  Serious: Yes (Other)
  Sender: ABBVIE
  Company Number: US-ABBVIE-6242565

PATIENT
  Age: 38 Year
  Sex: Female

DRUGS (2)
  1. RINVOQ [Suspect]
     Active Substance: UPADACITINIB
     Indication: Seronegative arthritis
     Dosage: STRENGTH: 15 MG
     Route: 048
     Dates: start: 2023, end: 2024
  2. RINVOQ [Suspect]
     Active Substance: UPADACITINIB
     Indication: Seronegative arthritis
     Dosage: STRENGTH: 15 MG
     Route: 048
     Dates: start: 202412

REACTIONS (3)
  - Intervertebral disc protrusion [Unknown]
  - Product use in unapproved indication [Unknown]
  - Pain [Recovered/Resolved]

NARRATIVE: CASE EVENT DATE: 20230101
